FAERS Safety Report 7256972-3 (Version None)
Quarter: 2011Q1

REPORT INFORMATION
  Report Type: 
  Country: None (occurrence: None)
  Receive Date: 20110129
  Receipt Date: 20100726
  Transmission Date: 20110831
  Serious: No
  Sender: FDA-Public Use
  Company Number: US-ABBOTT-10P-163-0659729-00

PATIENT
  Age: 58 Year
  Sex: Female

DRUGS (10)
  1. ADVAIR [Concomitant]
     Indication: PRODUCT USED FOR UNKNOWN INDICATION
  2. NUVIGIL [Concomitant]
     Indication: MIGRAINE
     Dosage: IN THE MORNING
  3. LYRICA [Concomitant]
     Indication: NERVOUSNESS
  4. EFFEXOR [Concomitant]
     Indication: DEPRESSION
     Dosage: 4 CAPS IN THE AM
  5. TOPIRAMATE [Concomitant]
     Indication: MIGRAINE
  6. RESTASIS [Concomitant]
     Indication: PRODUCT USED FOR UNKNOWN INDICATION
     Route: 047
  7. HUMIRA [Suspect]
     Indication: PSORIATIC ARTHROPATHY
     Dates: start: 20080501
  8. PROTOPIC [Concomitant]
     Indication: PSORIASIS
  9. CLOBEX [Concomitant]
     Indication: PSORIASIS
  10. CLONAZEPAM [Concomitant]
     Indication: ANXIETY

REACTIONS (1)
  - BRONCHITIS CHRONIC [None]
